FAERS Safety Report 6209985-4 (Version None)
Quarter: 2009Q2

REPORT INFORMATION
  Report Type: 
  Country: None (occurrence: None)
  Receive Date: 20090601
  Receipt Date: 20090519
  Transmission Date: 20091009
  Serious: Yes (Other)
  Sender: FDA-Public Use
  Company Number: BR-PFIZER INC-2009193415

PATIENT
  Age: 68 Year

DRUGS (2)
  1. FRONTAL [Suspect]
     Indication: NERVOUSNESS
  2. TRAMADOL HCL [Suspect]
     Indication: BACK PAIN
     Dosage: UNK
     Dates: start: 20090401

REACTIONS (5)
  - BLOOD PRESSURE INCREASED [None]
  - DEPENDENCE [None]
  - DRUG INEFFECTIVE [None]
  - HEART RATE INCREASED [None]
  - PROSTATOMEGALY [None]
